FAERS Safety Report 4267221-2 (Version None)
Quarter: 2004Q1

REPORT INFORMATION
  Report Type: 
  Country: None (occurrence: None)
  Receive Date: 20040107
  Receipt Date: 20031222
  Transmission Date: 20041129
  Serious: Yes (Hospitalization)
  Sender: FDA-Public Use
  Company Number: 2003AP03059

PATIENT
  Age: 52 Year
  Sex: Female

DRUGS (5)
  1. MARCAINE [Suspect]
     Indication: SPINAL ANAESTHESIA
     Dosage: 12.5 MG DAILY IT
     Route: 037
     Dates: start: 20030807, end: 20030807
  2. DORMICUM FOR INJECTION [Concomitant]
  3. NITROUS OXIDE [Concomitant]
  4. SEVOFRANE [Concomitant]
  5. VEEN-F [Concomitant]

REACTIONS (8)
  - ANAESTHETIC COMPLICATION [None]
  - ASTHENIA [None]
  - DIFFICULTY IN WALKING [None]
  - DYSSTASIA [None]
  - HYPOAESTHESIA [None]
  - NERVOUS SYSTEM DISORDER [None]
  - THERAPEUTIC AGENT TOXICITY [None]
  - WALKING AID USER [None]
